FAERS Safety Report 8984813 (Version 1)
Quarter: 2012Q4

REPORT INFORMATION
  Report Type: 
  Country: US (occurrence: US)
  Receive Date: 20121226
  Receipt Date: 20121226
  Transmission Date: 20130627
  Serious: No
  Sender: FDA-Public Use
  Company Number: US-BAYER-2012-128529

PATIENT
  Age: 58 Year
  Sex: Male

DRUGS (1)
  1. CIPRO [Suspect]
     Dosage: UNK
     Dates: start: 20120703

REACTIONS (1)
  - Hallucination [None]
